FAERS Safety Report 4375293-X (Version None)
Quarter: 2004Q2

REPORT INFORMATION
  Report Type: 
  Country: None (occurrence: None)
  Receive Date: 20040609
  Receipt Date: 20040607
  Transmission Date: 20050107
  Serious: Yes (Other)
  Sender: FDA-Public Use
  Company Number: 04-06-0809

PATIENT
  Age: 19 Year
  Sex: Male
  Weight: 60 kg

DRUGS (3)
  1. CEPHALEXIN [Suspect]
     Indication: PHARYNGOLARYNGEAL PAIN
     Dosage: 500MG ORAL
     Route: 048
     Dates: start: 20040512, end: 20040514
  2. OXYTETRACYCLINE [Concomitant]
  3. BENZOYL PEROXIDE [Concomitant]

REACTIONS (2)
  - DERMATITIS ALLERGIC [None]
  - INFECTIOUS MONONUCLEOSIS [None]
